FAERS Safety Report 9642145 (Version 2)
Quarter: 2013Q4

REPORT INFORMATION
  Report Type: Spontaneous
  Country: IT (occurrence: IT)
  Receive Date: 20131023
  Receipt Date: 20131101
  Transmission Date: 20140711
  Serious: Yes (Hospitalization)
  Sender: FDA-Public Use
  Company Number: IT-TEVA-437826ISR

PATIENT
  Age: 53 Year
  Sex: Female

DRUGS (4)
  1. SERTRALINA CLORIDRATO [Suspect]
     Indication: BIPOLAR DISORDER
     Dosage: 400 MILLIGRAM DAILY;
     Route: 048
     Dates: start: 20130712, end: 20130712
  2. FELISON 30MG [Suspect]
     Indication: BIPOLAR DISORDER
     Dosage: 11 DOSAGE FORMS DAILY;
     Route: 048
     Dates: start: 20130712, end: 20130712
  3. SEROQUEL 50MG [Suspect]
     Indication: BIPOLAR DISORDER
     Dosage: 3 DOSAGE FORMS DAILY;
     Route: 048
     Dates: start: 20130712, end: 20130712
  4. XANAX 2MG [Suspect]
     Indication: BIPOLAR DISORDER
     Dosage: 2 DOSAGE FORMS DAILY;
     Route: 048
     Dates: start: 20130712, end: 20130712

REACTIONS (3)
  - Drug abuse [Recovered/Resolved]
  - Bradykinesia [Recovered/Resolved]
  - Bradyphrenia [Recovered/Resolved]
